FAERS Safety Report 13098833 (Version 1)
Quarter: 2017Q1

REPORT INFORMATION
  Report Type: Spontaneous
  Country: FR (occurrence: FR)
  Receive Date: 20170109
  Receipt Date: 20170109
  Transmission Date: 20170428
  Serious: Yes (Life-Threatening, Hospitalization)
  Sender: FDA-Public Use
  Company Number: FR-ELI_LILLY_AND_COMPANY-FR201701001472

PATIENT
  Age: 66 Year
  Sex: Male

DRUGS (1)
  1. ZYPADHERA [Suspect]
     Active Substance: OLANZAPINE PAMOATE
     Indication: SCHIZOPHRENIA
     Dosage: 1 DF, MONTHLY (1/M)
     Route: 030
     Dates: start: 20161227

REACTIONS (7)
  - Oxygen saturation decreased [Recovered/Resolved]
  - Confusional state [Recovered/Resolved]
  - Sinus tachycardia [Recovered/Resolved]
  - Fibrin D dimer increased [Unknown]
  - Electrocardiogram QRS complex prolonged [Recovered/Resolved]
  - Agitation [Recovered/Resolved]
  - Depressed level of consciousness [Recovered/Resolved]

NARRATIVE: CASE EVENT DATE: 20161227
